FAERS Safety Report 23038502 (Version 1)
Quarter: 2023Q4

REPORT INFORMATION
  Report Type: Spontaneous
  Country: US (occurrence: US)
  Receive Date: 20231006
  Receipt Date: 20231006
  Transmission Date: 20240109
  Serious: No
  Sender: FDA-Public Use
  Company Number: US-Indivior Limited-INDV-138824-2023

PATIENT
  Sex: Female

DRUGS (2)
  1. SUBLOCADE [Suspect]
     Active Substance: BUPRENORPHINE
     Indication: Drug dependence
     Dosage: 300 MILLIGRAM, QMO
     Route: 058
     Dates: start: 202303
  2. PRAZOSIN [Suspect]
     Active Substance: PRAZOSIN
     Indication: Blood pressure management
     Dosage: UNK
     Route: 065

REACTIONS (4)
  - Euphoric mood [Recovered/Resolved]
  - Hypotension [Recovering/Resolving]
  - Drug interaction [Unknown]
  - Drug abuse [Unknown]

NARRATIVE: CASE EVENT DATE: 20230301
